FAERS Safety Report 23549195 (Version 2)
Quarter: 2024Q1

REPORT INFORMATION
  Report Type: Spontaneous
  Country: US (occurrence: US)
  Receive Date: 20240221
  Receipt Date: 20240312
  Transmission Date: 20240409
  Serious: No
  Sender: FDA-Public Use
  Company Number: US-PFIZER INC-PV202200075758

PATIENT
  Age: 60 Year
  Sex: Female
  Weight: 63.96 kg

DRUGS (4)
  1. IBRANCE [Suspect]
     Active Substance: PALBOCICLIB
     Indication: Breast cancer metastatic
     Dosage: 125 MG
  2. IBRANCE [Suspect]
     Active Substance: PALBOCICLIB
     Dosage: 21 DAYS ON, FOLLOWED BY 7 DAYS OFF
     Route: 048
  3. EFFEXOR [Concomitant]
     Active Substance: VENLAFAXINE HYDROCHLORIDE
     Dosage: 1 DF, DAILY TAKE 1 TABLET BY MOUTH EVERY AFTERNOON
     Route: 048
  4. EFFEXOR [Concomitant]
     Active Substance: VENLAFAXINE HYDROCHLORIDE
     Dosage: 150 MG, DAILY TAKE ONE CAPSULE BY MOUTH DAILY IN ADDITION TO 75 MG (TOTAL DOSE 225 MG)
     Route: 048

REACTIONS (2)
  - Dyspnoea [Unknown]
  - Product prescribing error [Unknown]
